FAERS Safety Report 13297159 (Version 1)
Quarter: 2017Q1

REPORT INFORMATION
  Report Type: Report from Study
  Country: AR (occurrence: AR)
  Receive Date: 20170306
  Receipt Date: 20170306
  Transmission Date: 20170428
  Serious: Yes (Other)
  Sender: FDA-Public Use
  Company Number: PHHY2017AR025368

PATIENT
  Sex: Female

DRUGS (3)
  1. DIOVAN [Suspect]
     Active Substance: VALSARTAN
     Indication: ARRHYTHMIA
  2. DIUREX [Concomitant]
     Active Substance: AMILORIDE HYDROCHLORIDE\HYDROCHLOROTHIAZIDE
     Indication: PRODUCT USED FOR UNKNOWN INDICATION
     Dosage: 1 DF, QD (TWO YEARS AGO APPROXIMATELY)
     Route: 065
  3. DIOVAN [Suspect]
     Active Substance: VALSARTAN
     Indication: CARDIAC DISORDER
     Dosage: 1 DF (160 MG), QD
     Route: 065

REACTIONS (13)
  - Muscle spasms [Unknown]
  - Hypersensitivity [Unknown]
  - Dyspnoea [Recovering/Resolving]
  - Asthma [Recovering/Resolving]
  - Memory impairment [Recovering/Resolving]
  - Product use issue [Unknown]
  - Wheezing [Recovering/Resolving]
  - Anaphylactic reaction [Unknown]
  - Chronic obstructive pulmonary disease [Recovering/Resolving]
  - Swelling [Unknown]
  - Anxiety [Recovering/Resolving]
  - Respiratory distress [Unknown]
  - Respiratory failure [Unknown]
